FAERS Safety Report 6524559-3 (Version None)
Quarter: 2009Q4

REPORT INFORMATION
  Report Type: 
  Country: None (occurrence: None)
  Receive Date: 20091224
  Receipt Date: 20091209
  Transmission Date: 20100525
  Serious: Yes (Life-Threatening, Hospitalization)
  Sender: FDA-Public Use
  Company Number: 2009-03031

PATIENT
  Age: 75 Year
  Sex: Male
  Weight: 53 kg

DRUGS (6)
  1. VELCADE [Suspect]
     Indication: MULTIPLE MYELOMA
     Dosage: 1.5 MG/M2, UNK, INTRAVENOUS, UNK, UNK, INTRAVENOUS
     Route: 042
     Dates: start: 20090507, end: 20090717
  2. VELCADE [Suspect]
     Indication: MULTIPLE MYELOMA
     Dosage: 1.5 MG/M2, UNK, INTRAVENOUS, UNK, UNK, INTRAVENOUS
     Route: 042
     Dates: start: 20090824
  3. VELCADE [Suspect]
  4. VELCADE [Suspect]
  5. CYCLOPHOSPHAMIDE [Concomitant]
  6. PREDNISONE [Concomitant]

REACTIONS (3)
  - DYSPHAGIA [None]
  - LARYNGOSPASM [None]
  - VOCAL CORD PARALYSIS [None]
